FAERS Safety Report 8321539-2 (Version None)
Quarter: 2012Q2

REPORT INFORMATION
  Report Type: 
  Country: None (occurrence: None)
  Receive Date: 20120430
  Receipt Date: 20120425
  Transmission Date: 20120825
  Serious: Yes (Other)
  Sender: FDA-Public Use
  Company Number: US-AMGEN-USASP2011062992

PATIENT
  Age: 77 Year
  Sex: Male
  Weight: 91.4 kg

DRUGS (1)
  1. NPLATE [Suspect]
     Indication: IDIOPATHIC THROMBOCYTOPENIC PURPURA
     Route: 058
     Dates: start: 20090201

REACTIONS (3)
  - BLOOD URIC ACID INCREASED [None]
  - PLATELET COUNT DECREASED [None]
  - GOUT [None]
